FAERS Safety Report 11061073 (Version 3)
Quarter: 2015Q2

REPORT INFORMATION
  Report Type: Spontaneous
  Country: JP (occurrence: JP)
  Receive Date: 20150424
  Receipt Date: 20150615
  Transmission Date: 20150821
  Serious: Yes (Death, Other)
  Sender: FDA-Public Use
  Company Number: JP-ROCHE-1568276

PATIENT
  Sex: Male
  Weight: 50 kg

DRUGS (2)
  1. XOLAIR [Suspect]
     Active Substance: OMALIZUMAB
     Indication: ASTHMA
     Route: 058
     Dates: start: 20150207, end: 20150207
  2. XOLAIR [Suspect]
     Active Substance: OMALIZUMAB
     Route: 058
     Dates: start: 20150309

REACTIONS (9)
  - Asthma [Unknown]
  - Sinus tachycardia [Unknown]
  - Adrenocortical insufficiency acute [Unknown]
  - Chronic obstructive pulmonary disease [Fatal]
  - Respiratory failure [Not Recovered/Not Resolved]
  - Gastrointestinal haemorrhage [Fatal]
  - Somnolence [Unknown]
  - Shock [Fatal]
  - Depressed level of consciousness [Unknown]
